FAERS Safety Report 15355092 (Version 4)
Quarter: 2018Q3

REPORT INFORMATION
  Report Type: Spontaneous
  Country: US (occurrence: US)
  Receive Date: 20180906
  Receipt Date: 20180928
  Transmission Date: 20181010
  Serious: No
  Sender: FDA-Public Use
  Company Number: US-PFIZER INC-2018357906

PATIENT
  Age: 82 Year
  Sex: Female
  Weight: 47 kg

DRUGS (9)
  1. ADVAIR HFA [Concomitant]
     Active Substance: FLUTICASONE PROPIONATE\SALMETEROL XINAFOATE
     Indication: ASTHMA
     Dosage: 100/50 1 PUFF EVERY 12 HOURS
     Dates: start: 2006
  2. VERAPAMIL [Concomitant]
     Active Substance: VERAPAMIL HYDROCHLORIDE
     Indication: BLOOD PRESSURE ABNORMAL
     Dosage: 120 MG, 1X/DAY
     Route: 048
  3. LYRICA [Suspect]
     Active Substance: PREGABALIN
     Indication: NEUROPATHY PERIPHERAL
     Dosage: 100 MG, 2X/DAY
     Route: 048
     Dates: start: 201807
  4. VERAPAMIL [Concomitant]
     Active Substance: VERAPAMIL HYDROCHLORIDE
     Indication: CARDIAC DISORDER
  5. ESTRADIOL. [Concomitant]
     Active Substance: ESTRADIOL
     Indication: BONE DISORDER
     Dosage: 0.5 G, 1X/DAY
     Route: 048
  6. DIGOXIN. [Concomitant]
     Active Substance: DIGOXIN
     Indication: CARDIAC DISORDER
     Dosage: 0.25 MG, 1X/DAY, AT NIGHT
  7. ADVAIR HFA [Concomitant]
     Active Substance: FLUTICASONE PROPIONATE\SALMETEROL XINAFOATE
     Indication: DYSPNOEA
  8. PROGESTERONE. [Concomitant]
     Active Substance: PROGESTERONE
     Indication: BONE DISORDER
     Dosage: 2.5 MG, 1X/DAY
  9. LYRICA [Suspect]
     Active Substance: PREGABALIN
     Dosage: 75 MG, 2X/DAY
     Route: 048
     Dates: start: 20180816

REACTIONS (4)
  - Peripheral swelling [Not Recovered/Not Resolved]
  - Gait disturbance [Unknown]
  - Rash pruritic [Not Recovered/Not Resolved]
  - Erythema [Unknown]

NARRATIVE: CASE EVENT DATE: 201808
